FAERS Safety Report 19159304 (Version 1)
Quarter: 2021Q2

REPORT INFORMATION
  Report Type: Spontaneous
  Country: US (occurrence: US)
  Receive Date: 20210420
  Receipt Date: 20210420
  Transmission Date: 20210717
  Serious: No
  Sender: FDA-Public Use
  Company Number: US-EMERGENT BIOSOLUTIONS,-21000029SP

PATIENT
  Sex: Male

DRUGS (2)
  1. NARCAN [Suspect]
     Active Substance: NALOXONE HYDROCHLORIDE
     Dosage: 4 MILLIGRAM IN THE EVENING
     Route: 065
     Dates: start: 20210228, end: 20210228
  2. NARCAN [Suspect]
     Active Substance: NALOXONE HYDROCHLORIDE
     Indication: PRODUCT USED FOR UNKNOWN INDICATION
     Dosage: 4 MILLIGRAM AT LUNCH TIME
     Route: 065
     Dates: start: 20210228, end: 20210228

REACTIONS (3)
  - Feeling cold [Recovered/Resolved]
  - Intentional product use issue [Unknown]
  - Hypoaesthesia [Recovered/Resolved]

NARRATIVE: CASE EVENT DATE: 20210228
